FAERS Safety Report 8532248-9 (Version None)
Quarter: 2012Q3

REPORT INFORMATION
  Report Type: 
  Country: None (occurrence: None)
  Receive Date: 20120723
  Receipt Date: 20120719
  Transmission Date: 20120928
  Serious: Yes (Other)
  Sender: FDA-Public Use
  Company Number: US-AMGEN-USASP2011017201

PATIENT
  Age: 53 Year
  Sex: Male
  Weight: 146.94 kg

DRUGS (4)
  1. PREDNISONE [Concomitant]
  2. PREDNISONE [Concomitant]
     Indication: IDIOPATHIC THROMBOCYTOPENIC PURPURA
     Dosage: 40 MG, QD
     Route: 048
     Dates: start: 20110106
  3. PREDNISONE [Concomitant]
  4. NPLATE [Suspect]
     Indication: IDIOPATHIC THROMBOCYTOPENIC PURPURA
     Dosage: 146 MUG, QWK
     Route: 058
     Dates: start: 20110223

REACTIONS (4)
  - PLATELET COUNT ABNORMAL [None]
  - TINNITUS [None]
  - VITREOUS DETACHMENT [None]
  - DIZZINESS [None]
